FAERS Safety Report 10663909 (Version 1)
Quarter: 2014Q4

REPORT INFORMATION
  Report Type: Spontaneous
  Country: US (occurrence: None)
  Receive Date: 20141217
  Receipt Date: 20141217
  Transmission Date: 20150529
  Serious: Yes (Hospitalization)
  Sender: FDA-Public Use
  Company Number: 201412082

PATIENT
  Age: 69 Year
  Sex: Male

DRUGS (1)
  1. TESTIM [Suspect]
     Active Substance: TESTOSTERONE
     Indication: BLOOD TESTOSTERONE DECREASED
     Route: 062
     Dates: start: 20120202, end: 201403

REACTIONS (14)
  - Rectal haemorrhage [None]
  - Pain [None]
  - Anhedonia [None]
  - Asthenia [None]
  - Pleural effusion [None]
  - Sexual relationship change [None]
  - Anxiety [None]
  - Economic problem [None]
  - Fatigue [None]
  - Hypotension [None]
  - Atrial fibrillation [None]
  - Pulmonary embolism [None]
  - Dizziness [None]
  - Pericardial haemorrhage [None]

NARRATIVE: CASE EVENT DATE: 20130717
